FAERS Safety Report 5521761-4 (Version None)
Quarter: 2007Q4

REPORT INFORMATION
  Report Type: 
  Country: None (occurrence: None)
  Receive Date: 20071120
  Receipt Date: 20071113
  Transmission Date: 20080405
  Serious: Yes (Hospitalization)
  Sender: FDA-Public Use
  Company Number: TH-ROCHE-528761

PATIENT
  Age: 24 Month
  Sex: Male
  Weight: 8.4 kg

DRUGS (1)
  1. OSELTAMIVIR [Suspect]
     Indication: AVIAN INFLUENZA
     Dosage: THE LAST DOSE WAS ADMINISTERED 16/10/2007
     Route: 065

REACTIONS (3)
  - BRONCHITIS [None]
  - DEHYDRATION [None]
  - PYREXIA [None]
